FAERS Safety Report 4907480-3 (Version None)
Quarter: 2006Q1

REPORT INFORMATION
  Report Type: 
  Country: None (occurrence: None)
  Receive Date: 20060210
  Receipt Date: 20050728
  Transmission Date: 20060701
  Serious: Yes (Death, Hospitalization, Disabling)
  Sender: FDA-Public Use
  Company Number: US-MERCK-0507USA04336

PATIENT
  Age: 80 Year
  Sex: Female

DRUGS (5)
  1. VIOXX [Suspect]
     Indication: ARTHRITIS
     Route: 048
     Dates: start: 20010101, end: 20030501
  2. TIMOPTIC [Concomitant]
     Indication: GLAUCOMA
     Route: 065
  3. CALAN [Concomitant]
     Route: 065
  4. MAXZIDE [Concomitant]
     Route: 065
  5. DARVOCET-N 50 [Concomitant]
     Route: 065

REACTIONS (17)
  - ASTHENIA [None]
  - BRADYCARDIA [None]
  - CARDIAC ARREST [None]
  - CARDIO-RESPIRATORY ARREST [None]
  - CHEST DISCOMFORT [None]
  - CHEST PAIN [None]
  - COMA [None]
  - DEATH [None]
  - DIZZINESS [None]
  - DYSPNOEA [None]
  - HEADACHE [None]
  - HYPERHIDROSIS [None]
  - HYPOTENSION [None]
  - LABYRINTHITIS [None]
  - NAUSEA [None]
  - VENTRICULAR FIBRILLATION [None]
  - VERTIGO POSITIONAL [None]
